FAERS Safety Report 7620705-9 (Version None)
Quarter: 2011Q3

REPORT INFORMATION
  Report Type: 
  Country: None (occurrence: None)
  Receive Date: 20110719
  Receipt Date: 20110713
  Transmission Date: 20111222
  Serious: Yes (Hospitalization)
  Sender: FDA-Public Use
  Company Number: US-GLAXOSMITHKLINE-A0936670A

PATIENT
  Age: 55 Year
  Sex: Female

DRUGS (4)
  1. ADVAIR DISKUS 100/50 [Suspect]
     Indication: ASTHMA
     Dosage: 1PUFF TWICE PER DAY
     Route: 055
     Dates: start: 20100101
  2. SINGULAIR [Concomitant]
  3. CHOLESTEROL REDUCING AGENT [Concomitant]
  4. ZOLOFT [Concomitant]

REACTIONS (6)
  - FALL [None]
  - TRAUMATIC LUNG INJURY [None]
  - LOWER LIMB FRACTURE [None]
  - PNEUMONIA [None]
  - PRODUCT QUALITY ISSUE [None]
  - OXYGEN SATURATION DECREASED [None]
